FAERS Safety Report 17044937 (Version 2)
Quarter: 2019Q4

REPORT INFORMATION
  Report Type: Report from Study
  Country: GB (occurrence: GB)
  Receive Date: 20191118
  Receipt Date: 20191128
  Transmission Date: 20200122
  Serious: Yes (Hospitalization)
  Sender: FDA-Public Use
  Company Number: NVSC2019GB038845

PATIENT
  Sex: Male

DRUGS (1)
  1. ERELZI [Suspect]
     Active Substance: ETANERCEPT-SZZS
     Indication: RHEUMATOID ARTHRITIS
     Dosage: 50 MG, QW
     Route: 065
     Dates: start: 20190501

REACTIONS (4)
  - Ill-defined disorder [Unknown]
  - Lower respiratory tract infection [Unknown]
  - Pulmonary haemorrhage [Unknown]
  - Myocardial infarction [Unknown]
